FAERS Safety Report 7670253 (Version 5)
Quarter: 2013Q1

REPORT INFORMATION
  Report Type: Spontaneous
  Country: US (occurrence: US)
  Receive Date: 20101116
  Receipt Date: 20130225
  Transmission Date: 20140127
  Serious: Yes (Death, Other)
  Sender: FDA-Public Use
  Company Number: US-JNJFOC-20101103088

PATIENT
  Sex: Female
  Weight: 72.58 kg

DRUGS (9)
  1. DOXORUBICIN HYDROCHLORIDE (DOXIL) [Suspect]
     Indication: OVARIAN EPITHELIAL CANCER RECURRENT
     Dosage: 5 CYCLES
     Route: 042
     Dates: start: 200601, end: 20060418
  2. DOXORUBICIN HYDROCHLORIDE (DOXIL) [Suspect]
     Indication: OVARIAN EPITHELIAL CANCER RECURRENT
     Dosage: CUMULATIVE DOSE 1730 MG/M2 OVER 7 YEARS
     Route: 042
     Dates: start: 200712
  3. DOXORUBICIN HYDROCHLORIDE (DOXIL) [Suspect]
     Indication: OVARIAN EPITHELIAL CANCER RECURRENT
     Dosage: UNSPECIFIED DOSE EVERY 4-7 WEEKS FOR 7 YEARS;  CUMULATIVE DOSE 1730 MG/M2
     Route: 042
     Dates: end: 200608
  4. DOXORUBICIN HYDROCHLORIDE (DOXIL) [Suspect]
     Indication: OVARIAN EPITHELIAL CANCER RECURRENT
     Route: 042
     Dates: start: 200507
  5. DOXORUBICIN HYDROCHLORIDE (DOXIL) [Suspect]
     Indication: OVARIAN EPITHELIAL CANCER RECURRENT
     Route: 042
     Dates: start: 2004, end: 200506
  6. CARBOPLATIN [Suspect]
     Indication: OVARIAN CANCER
     Route: 065
     Dates: start: 200601, end: 20060418
  7. CARBOPLATIN [Suspect]
     Indication: OVARIAN CANCER
     Route: 065
  8. TOPOTECAN [Suspect]
     Indication: OVARIAN CANCER
     Route: 065
  9. THIAZIDES [Concomitant]
     Indication: HYPERTENSION

REACTIONS (2)
  - Renal failure chronic [Unknown]
  - Ovarian cancer [Fatal]
